FAERS Safety Report 25983680 (Version 3)
Quarter: 2025Q4

REPORT INFORMATION
  Report Type: Spontaneous
  Country: US (occurrence: None)
  Receive Date: 20251031
  Receipt Date: 20251209
  Transmission Date: 20260117
  Serious: Yes (Hospitalization)
  Sender: CHIESI
  Company Number: US-CHIESI-2025CHF05505

PATIENT
  Sex: Female

DRUGS (1)
  1. MYCAPSSA [Suspect]
     Active Substance: OCTREOTIDE
     Indication: Acromegaly
     Dosage: 1 DOSAGE FORM, BID

REACTIONS (8)
  - Ill-defined disorder [Recovered/Resolved]
  - Tremor [Not Recovered/Not Resolved]
  - Swelling [Not Recovered/Not Resolved]
  - Myalgia [Not Recovered/Not Resolved]
  - Malaise [Not Recovered/Not Resolved]
  - Hyperhidrosis [Not Recovered/Not Resolved]
  - Product packaging issue [Not Recovered/Not Resolved]
  - Product administration interrupted [Not Recovered/Not Resolved]
